FAERS Safety Report 8638547 (Version 5)
Quarter: 2013Q3

REPORT INFORMATION
  Report Type: Spontaneous
  Country: JP (occurrence: JP)
  Receive Date: 20120627
  Receipt Date: 20130826
  Transmission Date: 20140515
  Serious: Yes (Other)
  Sender: FDA-Public Use
  Company Number: JP-JNJFOC-20120609357

PATIENT
  Sex: 0

DRUGS (4)
  1. DOXORUBICIN [Suspect]
     Indication: PLASMA CELL MYELOMA
     Dosage: DAYS 1-4
     Route: 042
  2. DOXORUBICIN [Suspect]
     Indication: PLASMA CELL MYELOMA
     Dosage: DAYS 1-4
     Route: 042
  3. BORTEZOMIB [Suspect]
     Indication: PLASMA CELL MYELOMA
     Dosage: DAYS 1, 4, 8 AND 11 (1 MG/ M2 IN COHORT 1 AND 1.3 MG/ M2 IN COHORT 2)
     Route: 042
  4. DEXAMETHASONE [Suspect]
     Indication: PLASMA CELL MYELOMA
     Dosage: DAYS 1-2, 4-5, 8-9 AND 11-12
     Route: 048

REACTIONS (12)
  - Toxicity to various agents [Unknown]
  - Haematotoxicity [Unknown]
  - Thrombocytopenia [Unknown]
  - Neutropenia [Unknown]
  - Anaemia [Unknown]
  - Febrile neutropenia [Unknown]
  - Peripheral sensory neuropathy [Unknown]
  - Hypokalaemia [Unknown]
  - Hyponatraemia [Unknown]
  - Fatigue [Unknown]
  - Nausea [Unknown]
  - Diarrhoea [Unknown]
